FAERS Safety Report 5706335-4 (Version None)
Quarter: 2008Q2

REPORT INFORMATION
  Report Type: 
  Country: None (occurrence: None)
  Receive Date: 20080411
  Receipt Date: 20080327
  Transmission Date: 20081010
  Serious: Yes (Death, Congenital Anomaly)
  Sender: FDA-Public Use
  Company Number: DSM_2008_00331

PATIENT
  Age: 1 Day
  Sex: Male
  Weight: 0.81 kg

DRUGS (2)
  1. ALTEIS (OLMESARTAN MEDOXOMIL) (OLMESARTAN MEDOXOMIL) [Suspect]
     Indication: HYPERTENSION
     Dosage: TRANSPLACENTAL
     Route: 062
  2. LODOZ (HYDROCHLOROTHIAZIDE BISOPROLOL FUMARATE) (HYDROCHLOROTHIAZIDE, [Suspect]
     Indication: HYPERTENSION
     Dosage: TRANSPLACENTAL
     Route: 064

REACTIONS (13)
  - ABORTION INDUCED [None]
  - CONGENITAL BLADDER ANOMALY [None]
  - CONGENITAL CENTRAL NERVOUS SYSTEM ANOMALY [None]
  - DEATH NEONATAL [None]
  - DRUG EXPOSURE DURING PREGNANCY [None]
  - FOETAL GROWTH RETARDATION [None]
  - MULTIPLE CONGENITAL ABNORMALITIES [None]
  - OLIGOHYDRAMNIOS [None]
  - POTTER'S SYNDROME [None]
  - PREGNANCY [None]
  - PULMONARY HYPOPLASIA [None]
  - SMALL FOR DATES BABY [None]
  - TALIPES [None]
